FAERS Safety Report 7251005-7 (Version None)
Quarter: 2011Q1

REPORT INFORMATION
  Report Type: 
  Country: None (occurrence: None)
  Receive Date: 20110128
  Receipt Date: 20110119
  Transmission Date: 20110831
  Serious: Yes (Hospitalization)
  Sender: FDA-Public Use
  Company Number: B0696125A

PATIENT

DRUGS (1)
  1. TYKERB [Suspect]
     Indication: BREAST CANCER
     Dates: start: 20100723

REACTIONS (1)
  - FEBRILE NEUTROPENIA [None]
